FAERS Safety Report 5669651-0 (Version None)
Quarter: 2008Q1

REPORT INFORMATION
  Report Type: 
  Country: None (occurrence: None)
  Receive Date: 20080317
  Receipt Date: 20080305
  Transmission Date: 20080703
  Serious: Yes (Hospitalization)
  Sender: FDA-Public Use
  Company Number: FR-ROCHE-551856

PATIENT
  Age: 77 Year
  Sex: Male

DRUGS (10)
  1. RIVOTRIL [Suspect]
     Indication: ARTERITIS
     Route: 048
     Dates: end: 20080201
  2. LERCAN [Suspect]
     Indication: DRUG USE FOR UNKNOWN INDICATION
     Route: 048
     Dates: end: 20080201
  3. PARIET [Suspect]
     Indication: DRUG USE FOR UNKNOWN INDICATION
     Route: 048
     Dates: end: 20080201
  4. FUROSEMIDE [Suspect]
     Indication: DRUG USE FOR UNKNOWN INDICATION
     Route: 048
     Dates: end: 20080201
  5. ATHYMIL [Suspect]
     Indication: DRUG USE FOR UNKNOWN INDICATION
     Route: 048
     Dates: end: 20080201
  6. HYPERIUM [Suspect]
     Indication: DRUG USE FOR UNKNOWN INDICATION
     Route: 048
     Dates: start: 20071201, end: 20080201
  7. HYDROCORTISONE [Concomitant]
     Indication: ADRENAL INSUFFICIENCY
  8. DIFFU K [Concomitant]
     Dates: end: 20080201
  9. CACIT D3 [Concomitant]
     Dates: end: 20080201
  10. AUGMENTIN '125' [Concomitant]
     Dates: start: 20071201, end: 20080201

REACTIONS (1)
  - AGRANULOCYTOSIS [None]
